FAERS Safety Report 5132302-8 (Version None)
Quarter: 2006Q4

REPORT INFORMATION
  Report Type: 
  Country: None (occurrence: None)
  Receive Date: 20061020
  Receipt Date: 20061020
  Transmission Date: 20070319
  Serious: Yes (Death, Hospitalization)
  Sender: FDA-Public Use
  Company Number: None

PATIENT
  Sex: Female
  Weight: 93.6 kg

DRUGS (3)
  1. FLUOROURACIL [Suspect]
     Dosage: 2400 MG
     Dates: end: 20060921
  2. CYCLOPHOSPHAMIDE [Suspect]
     Dosage: 2800 MG
     Dates: end: 20060927
  3. METHOTREXATE SODIUM [Suspect]
     Dosage: 80 MG
     Dates: end: 20060921

REACTIONS (4)
  - ASTHENIA [None]
  - DIFFICULT TO WEAN FROM VENTILATOR [None]
  - DISSEMINATED INTRAVASCULAR COAGULATION [None]
  - LOBAR PNEUMONIA [None]
